FAERS Safety Report 14553430 (Version 1)
Quarter: 2018Q1

REPORT INFORMATION
  Report Type: Spontaneous
  Country: US (occurrence: US)
  Receive Date: 20180220
  Receipt Date: 20180220
  Transmission Date: 20180509
  Serious: No
  Sender: FDA-Public Use
  Company Number: US-MYLANLABS-2018M1012090

PATIENT
  Sex: Male
  Weight: 77 kg

DRUGS (2)
  1. LEVOTHYROXINE. [Suspect]
     Active Substance: LEVOTHYROXINE
     Indication: HYPOTHYROIDISM
     Dosage: 125 ?G, UNK
     Route: 048
     Dates: start: 2011
  2. L-TYROSINE [Interacting]
     Active Substance: TYROSINE
     Indication: SUPPLEMENTATION THERAPY
     Dosage: UNK

REACTIONS (7)
  - Disturbance in attention [Recovering/Resolving]
  - Alopecia [Recovering/Resolving]
  - Muscle spasms [Recovering/Resolving]
  - Headache [Recovering/Resolving]
  - Feeling abnormal [None]
  - Anxiety [Recovering/Resolving]
  - Drug interaction [Unknown]
